FAERS Safety Report 18395678 (Version 2)
Quarter: 2022Q1

REPORT INFORMATION
  Report Type: Spontaneous
  Country: US (occurrence: US)
  Receive Date: 20201018
  Receipt Date: 20220308
  Transmission Date: 20220424
  Serious: Yes (Other)
  Sender: FDA-Public Use
  Company Number: US-SAARTEMIS-SAC202010090126

PATIENT
  Age: 74 Year
  Sex: Female

DRUGS (2)
  1. ZANTAC [Suspect]
     Active Substance: RANITIDINE HYDROCHLORIDE
     Indication: Gastrooesophageal reflux disease
     Dosage: 75 MG, QD
     Dates: start: 201401
  2. ZANTAC [Suspect]
     Active Substance: RANITIDINE HYDROCHLORIDE
     Dosage: 150 MG, QD
     Dates: end: 202009

REACTIONS (2)
  - Bladder cancer [Unknown]
  - Colorectal cancer stage II [Unknown]

NARRATIVE: CASE EVENT DATE: 20181101
